FAERS Safety Report 8601272 (Version 3)
Quarter: 2012Q4

REPORT INFORMATION
  Report Type: 
  Country: US (occurrence: US)
  Receive Date: 20120606
  Receipt Date: 20121025
  Transmission Date: 20130627
  Serious: Yes (Other)
  Sender: FDA-Public Use
  Company Number: US-GLAXOSMITHKLINE-A0979925A

PATIENT
  Sex: Female

DRUGS (4)
  1. ALLI [Suspect]
     Indication: WEIGHT DECREASED
     Dosage: 60MG Three times per day
     Route: 048
     Dates: start: 200803, end: 200804
  2. ZOLOFT [Suspect]
     Indication: PRODUCT USED FOR UNKNOWN INDICATION
     Dosage: 50MG Per day
     Route: 065
     Dates: start: 20080205
  3. UNKNOWN BIRTH CONTROL PILL [Concomitant]
  4. METAMUCIL [Concomitant]

REACTIONS (1)
  - Hepatitis acute [Recovered/Resolved]
